FAERS Safety Report 15751884 (Version 1)
Quarter: 2018Q4

REPORT INFORMATION
  Report Type: Spontaneous
  Country: US (occurrence: US)
  Receive Date: 20181221
  Receipt Date: 20181221
  Transmission Date: 20190205
  Serious: No
  Sender: FDA-Public Use
  Company Number: US-ELI_LILLY_AND_COMPANY-US201812008308

PATIENT
  Sex: Female
  Weight: 63.49 kg

DRUGS (6)
  1. ORENITRAM [Suspect]
     Active Substance: TREPROSTINIL
     Dosage: 9.875 MG, EVERY 8 HRS
     Route: 048
  2. ORENITRAM [Suspect]
     Active Substance: TREPROSTINIL
     Dosage: 9.875 MG, EVERY 8 HRS
     Route: 048
  3. LETAIRIS [Concomitant]
     Active Substance: AMBRISENTAN
     Indication: PRODUCT USED FOR UNKNOWN INDICATION
  4. ADCIRCA [Suspect]
     Active Substance: TADALAFIL
     Indication: PULMONARY ARTERIAL HYPERTENSION
     Dosage: UNK, UNKNOWN
     Route: 065
     Dates: start: 20181211
  5. ORENITRAM [Suspect]
     Active Substance: TREPROSTINIL
     Dosage: 9.875 MG, EVERY 8 HRS
     Route: 048
  6. ORENITRAM [Suspect]
     Active Substance: TREPROSTINIL
     Indication: PULMONARY ARTERIAL HYPERTENSION
     Dosage: 9.875 MG, EVERY 8 HRS
     Route: 048
     Dates: start: 20160829

REACTIONS (5)
  - Heart rate increased [Unknown]
  - Feeling abnormal [Unknown]
  - Dyspnoea [Unknown]
  - Diarrhoea [Unknown]
  - Nausea [Unknown]
